FAERS Safety Report 4426237-3 (Version None)
Quarter: 2004Q3

REPORT INFORMATION
  Report Type: 
  Country: None (occurrence: None)
  Receive Date: 20040811
  Receipt Date: 20040729
  Transmission Date: 20050211
  Serious: Yes (Other)
  Sender: FDA-Public Use
  Company Number: JP-JNJFOC-20040600405

PATIENT
  Age: 82 Year
  Sex: Male

DRUGS (9)
  1. ITRACONAZOLE [Suspect]
     Indication: FUNGAEMIA
     Dosage: 150 MG,  1 IN 1 DAY, ORAL
     Route: 048
     Dates: start: 20040422, end: 20040511
  2. SODIUM ALGINATE (SODIUM ALGINATE) [Concomitant]
  3. ALUMINIUM HYDROXIDE-MAGNESIUM HYDROXIDE (MAGNESIUM HYDROXIDE) [Concomitant]
  4. DIFLUCORTOLONE VALERATE-LIDOCAINE (DIFLUCORTOLONE VALERATE) [Concomitant]
  5. VALSARTAN (VALSARTAN) [Concomitant]
  6. LEVOTHYROXINE SODUM (LEVOTHYROXINE SODIUM) [Concomitant]
  7. AZATHIOPRINE [Concomitant]
  8. ALFACALCIDOL (ALFACALCIDOL) [Concomitant]
  9. METHYLPREDNISOLONE [Concomitant]

REACTIONS (4)
  - CONDITION AGGRAVATED [None]
  - PNEUMONIA [None]
  - RENAL IMPAIRMENT [None]
  - THROMBOCYTOPENIA [None]
